FAERS Safety Report 6326580-7 (Version None)
Quarter: 2009Q3

REPORT INFORMATION
  Report Type: 
  Country: None (occurrence: None)
  Receive Date: 20090825
  Receipt Date: 20090819
  Transmission Date: 20100115
  Serious: Yes (Hospitalization)
  Sender: FDA-Public Use
  Company Number: FR-WYE-G04264709

PATIENT
  Sex: Male

DRUGS (16)
  1. TAZOCILLINE [Suspect]
     Indication: BACTERIAL INFECTION
     Route: 042
     Dates: start: 20090703, end: 20090708
  2. TAZOCILLINE [Suspect]
     Route: 042
     Dates: start: 20090721, end: 20090728
  3. MYAMBUTOL [Suspect]
     Indication: TUBERCULOSIS
     Dosage: 1200 MG TOTAL DAILY
     Route: 048
     Dates: start: 20090720, end: 20090729
  4. MYAMBUTOL [Suspect]
     Dosage: 1200 MG TOTAL DAILY
     Route: 048
     Dates: start: 20090804
  5. RIFADIN [Suspect]
     Indication: TUBERCULOSIS
     Dosage: UNKNOWN
     Route: 048
     Dates: start: 20090804, end: 20090804
  6. RIMIFON [Suspect]
     Indication: TUBERCULOSIS
     Dosage: UNKNOWN
     Route: 048
     Dates: start: 20090804, end: 20090804
  7. ZECLAR [Concomitant]
     Dosage: UNKNOWN
     Dates: end: 20090729
  8. AMIKLIN [Suspect]
     Indication: BACTERIAL INFECTION
     Dosage: UNKNOWN
     Dates: start: 20090703, end: 20090708
  9. AMIKLIN [Suspect]
     Indication: ESCHERICHIA SEPSIS
     Dosage: UNKNOWN
     Dates: start: 20090804, end: 20090804
  10. RULID [Suspect]
     Dosage: UNKNOWN
     Dates: start: 20090712, end: 20090720
  11. VANCOMYCIN [Suspect]
     Dosage: UNKNOWN
     Dates: start: 20090721, end: 20090722
  12. APRANAX [Suspect]
     Dosage: UNKNOWN
     Dates: start: 20090725, end: 20090729
  13. INEXIUM [Suspect]
     Dosage: UNKNOWN
     Dates: start: 20090725, end: 20090729
  14. RIFATER [Suspect]
     Indication: TUBERCULOSIS
     Dosage: 5 TABLETS TOTAL DAILY
     Route: 048
     Dates: start: 20090720, end: 20090729
  15. ROCEPHIN [Suspect]
     Indication: ESCHERICHIA SEPSIS
     Dosage: UNKNOWN
     Route: 042
     Dates: start: 20090716, end: 20090720
  16. ROCEPHIN [Suspect]
     Dosage: UNKNOWN
     Route: 042
     Dates: start: 20090804, end: 20090804

REACTIONS (15)
  - BLISTER [None]
  - BLOOD PRESSURE DECREASED [None]
  - CONDITION AGGRAVATED [None]
  - CROSS SENSITIVITY REACTION [None]
  - ESCHERICHIA SEPSIS [None]
  - LICHENOID KERATOSIS [None]
  - OEDEMA PERIPHERAL [None]
  - PROTEINURIA [None]
  - PRURITUS [None]
  - PURPURA [None]
  - PYREXIA [None]
  - RASH ERYTHEMATOUS [None]
  - RASH MORBILLIFORM [None]
  - SKIN EXFOLIATION [None]
  - TOXIC SKIN ERUPTION [None]
